FAERS Safety Report 7219909-9 (Version None)
Quarter: 2011Q1

REPORT INFORMATION
  Report Type: 
  Country: None (occurrence: None)
  Receive Date: 20110111
  Receipt Date: 20110105
  Transmission Date: 20110831
  Serious: Yes (Death)
  Sender: FDA-Public Use
  Company Number: PHEH2007US16453

PATIENT
  Sex: Male
  Weight: 68 kg

DRUGS (3)
  1. EXJADE [Suspect]
     Indication: COLD TYPE HAEMOLYTIC ANAEMIA
  2. EXJADE [Suspect]
     Indication: ANAEMIA HAEMOLYTIC AUTOIMMUNE
     Dosage: 500 MG, DAILY
     Dates: start: 20070314, end: 20070827
  3. ZOMETA [Suspect]
     Dosage: UNK
     Dates: start: 20070913

REACTIONS (1)
  - LUNG CANCER METASTATIC [None]
